FAERS Safety Report 13855842 (Version 3)
Quarter: 2020Q1

REPORT INFORMATION
  Report Type: Spontaneous
  Country: JP (occurrence: JP)
  Receive Date: 20170810
  Receipt Date: 20200228
  Transmission Date: 20200409
  Serious: Yes (Death)
  Sender: FDA-Public Use
  Company Number: JP-BAYER-2017-144584

PATIENT
  Sex: Female

DRUGS (3)
  1. ADEMPAS [Suspect]
     Active Substance: RIOCIGUAT
     Indication: PULMONARY ARTERIAL HYPERTENSION
     Dosage: 2 MG, TID
     Route: 048
     Dates: start: 20170313, end: 20170727
  2. MACITENTAN [Concomitant]
     Active Substance: MACITENTAN
  3. VENTAVIS [Concomitant]
     Active Substance: ILOPROST

REACTIONS (3)
  - Pulmonary arterial hypertension [Fatal]
  - Pneumonia aspiration [Fatal]
  - Cardiac failure [Fatal]

NARRATIVE: CASE EVENT DATE: 20170727
